FAERS Safety Report 11744978 (Version 39)
Quarter: 2018Q1

REPORT INFORMATION
  Report Type: Spontaneous
  Country: US (occurrence: US)
  Receive Date: 20151117
  Receipt Date: 20180119
  Transmission Date: 20180508
  Serious: Yes (Other)
  Sender: FDA-Public Use
  Company Number: US-009507513-1511USA005619

PATIENT
  Age: 70 Year
  Sex: Male
  Weight: 100 kg

DRUGS (56)
  1. KEYTRUDA [Suspect]
     Active Substance: PEMBROLIZUMAB
     Dosage: 200 MG, Q3W
     Route: 042
     Dates: start: 20160421
  2. KEYTRUDA [Suspect]
     Active Substance: PEMBROLIZUMAB
     Dosage: 19TH INFUSION
     Dates: start: 20161007, end: 20161007
  3. KEYTRUDA [Suspect]
     Active Substance: PEMBROLIZUMAB
     Dosage: 22ND INFUSION
     Dates: start: 20161230, end: 20161230
  4. VITAMIN D [Concomitant]
     Active Substance: CHOLECALCIFEROL
     Indication: OSTEOPOROSIS
     Dosage: 5000 UNITS DAILY
     Dates: start: 2006
  5. KEYTRUDA [Suspect]
     Active Substance: PEMBROLIZUMAB
     Dosage: 200 MG, Q3W
     Route: 042
     Dates: start: 20160401, end: 20160401
  6. KEYTRUDA [Suspect]
     Active Substance: PEMBROLIZUMAB
     Dosage: 21ST INFUSION
     Dates: start: 20161209, end: 20161209
  7. KEYTRUDA [Suspect]
     Active Substance: PEMBROLIZUMAB
     Dosage: 24TH INFUSION
     Dates: start: 20170210, end: 20170210
  8. KEYTRUDA [Suspect]
     Active Substance: PEMBROLIZUMAB
     Dosage: 200 MG, 31ST INFUSION
     Dates: start: 20170707, end: 20170707
  9. KEYTRUDA [Suspect]
     Active Substance: PEMBROLIZUMAB
     Dosage: 200 MG, CYCLICAL, 37TH INFUSION
     Dates: start: 20171127, end: 20171127
  10. CYANOCOBALAMIN. [Concomitant]
     Active Substance: CYANOCOBALAMIN
     Dosage: UNK
  11. VITAMIN D [Concomitant]
     Active Substance: CHOLECALCIFEROL
     Dosage: 5000 UNITS DAILY
     Dates: start: 2016
  12. INFLUENZA VIRUS VACCINE (UNSPECIFIED) [Concomitant]
     Active Substance: INFLUENZA VIRUS VACCINE
     Indication: PROPHYLAXIS
  13. KEYTRUDA [Suspect]
     Active Substance: PEMBROLIZUMAB
     Dosage: 2 MG/KG, Q3W
     Route: 042
     Dates: start: 201601, end: 20160219
  14. KEYTRUDA [Suspect]
     Active Substance: PEMBROLIZUMAB
     Dosage: UNK, 14TH CYCLE
     Dates: start: 20160714, end: 20160714
  15. KEYTRUDA [Suspect]
     Active Substance: PEMBROLIZUMAB
     Dosage: 20TH INFUSION
     Dates: start: 20161028, end: 20161028
  16. KEYTRUDA [Suspect]
     Active Substance: PEMBROLIZUMAB
     Dosage: 25TH INFUSION
     Dates: start: 20170303, end: 20170303
  17. KEYTRUDA [Suspect]
     Active Substance: PEMBROLIZUMAB
     Dosage: 200 MG, 30TH INFUSION
     Dates: start: 20170616, end: 20170616
  18. KEYTRUDA [Suspect]
     Active Substance: PEMBROLIZUMAB
     Dosage: 200 MG, 4 WEEK CYCLE, 35TH INFUSION
     Route: 042
     Dates: start: 20170928, end: 20170928
  19. EVOXAC [Concomitant]
     Active Substance: CEVIMELINE HYDROCHLORIDE
     Dosage: UNK
  20. PYRIDOXINE [Concomitant]
     Active Substance: PYRIDOXINE
     Dosage: UNK
  21. KEYTRUDA [Suspect]
     Active Substance: PEMBROLIZUMAB
     Dosage: 2 MG/KG, Q3W
     Route: 042
     Dates: start: 20151013
  22. KEYTRUDA [Suspect]
     Active Substance: PEMBROLIZUMAB
     Dosage: 200 MG, Q3W
     Route: 042
     Dates: start: 20160108, end: 20160108
  23. KEYTRUDA [Suspect]
     Active Substance: PEMBROLIZUMAB
     Dosage: 20TH INFUSION
     Dates: start: 20161118, end: 20161118
  24. KEYTRUDA [Suspect]
     Active Substance: PEMBROLIZUMAB
     Dosage: 200 MG, 29TH INFUSION
     Dates: start: 20170526, end: 20170526
  25. CARAC [Suspect]
     Active Substance: FLUOROURACIL
     Indication: CHEMOTHERAPY
     Dosage: UNK
     Route: 061
     Dates: start: 2016
  26. FLOMAX [Concomitant]
     Active Substance: TAMSULOSIN HYDROCHLORIDE
     Dosage: UNK
  27. LEVOXYL [Concomitant]
     Active Substance: LEVOTHYROXINE SODIUM
     Dosage: UNK, 50
     Dates: start: 20150721
  28. MAGNESIUM (UNSPECIFIED) [Concomitant]
     Active Substance: MAGNESIUM
     Indication: OSTEOPOROSIS
     Dosage: UNK
  29. THERAPEUTIC RADIOPHARMACEUTICAL (UNSPECIFIED) [Concomitant]
     Active Substance: UNSPECIFIED INGREDIENT
  30. KEYTRUDA [Suspect]
     Active Substance: PEMBROLIZUMAB
     Dosage: 17TH CYCLE
     Dates: start: 20160915, end: 20160915
  31. KEYTRUDA [Suspect]
     Active Substance: PEMBROLIZUMAB
     Dosage: 200 MG, 28TH INFUSION
     Dates: start: 20170505, end: 20170505
  32. KEYTRUDA [Suspect]
     Active Substance: PEMBROLIZUMAB
     Dosage: 200 MG, 32ND INFUSION
     Dates: start: 20170728, end: 20170728
  33. KEYTRUDA [Suspect]
     Active Substance: PEMBROLIZUMAB
     Dosage: 200 MG, 4 WEEK CYCLE, 36TH INFUSION
     Dates: start: 20171026
  34. PREVNAR [Suspect]
     Active Substance: PNEUMOCOCCAL 7-VALENT CONJUGATE VACCINE (DIPHTHERIA CRM197 PROTEIN)
  35. AMBIEN CR [Concomitant]
     Active Substance: ZOLPIDEM TARTRATE
     Dosage: UNK
  36. ASPIRIN. [Concomitant]
     Active Substance: ASPIRIN
     Dosage: UNK
     Route: 048
  37. KEYTRUDA [Suspect]
     Active Substance: PEMBROLIZUMAB
     Dosage: 2 MG/KG, Q3W
     Route: 042
     Dates: start: 20151215, end: 20151215
  38. KEYTRUDA [Suspect]
     Active Substance: PEMBROLIZUMAB
     Dosage: UNK, 12TH INFUSION
     Dates: start: 20160602
  39. KEYTRUDA [Suspect]
     Active Substance: PEMBROLIZUMAB
     Dosage: 15 TH CYCLE
     Dates: start: 20160804, end: 20160804
  40. KEYTRUDA [Suspect]
     Active Substance: PEMBROLIZUMAB
     Dosage: 200 MG, 27TH INFUSION
     Dates: start: 20170414, end: 20170414
  41. KEYTRUDA [Suspect]
     Active Substance: PEMBROLIZUMAB
     Dosage: 200 MG, 33RD INFUSION
     Dates: start: 20170818, end: 20170818
  42. KEYTRUDA [Suspect]
     Active Substance: PEMBROLIZUMAB
     Dosage: 200 MG, UNK
     Dates: start: 20171228, end: 20171228
  43. PREVACID [Concomitant]
     Active Substance: LANSOPRAZOLE
     Dosage: UNK
  44. AVASTOR [Concomitant]
     Dosage: UNK
  45. ZOMETA [Concomitant]
     Active Substance: ZOLEDRONIC ACID
     Dosage: UNK
  46. DOXYCYCLINE HYCLATE. [Concomitant]
     Active Substance: DOXYCYCLINE HYCLATE
     Dosage: 100 MG, BID
  47. KEYTRUDA [Suspect]
     Active Substance: PEMBROLIZUMAB
     Dosage: 23RD INFUSION
     Dates: start: 20170120, end: 20170120
  48. KEYTRUDA [Suspect]
     Active Substance: PEMBROLIZUMAB
     Dosage: 200 MG, 34TH INFUSION
     Dates: start: 20170907, end: 20170907
  49. PRINIVIL [Concomitant]
     Active Substance: LISINOPRIL
     Dosage: UNK
     Route: 048
  50. VITAMIN D [Concomitant]
     Active Substance: CHOLECALCIFEROL
     Dosage: 2000 UNITS DAILY
     Dates: start: 201606
  51. KEYTRUDA [Suspect]
     Active Substance: PEMBROLIZUMAB
     Dosage: 16TH CYCLE
     Dates: start: 20160825, end: 20160825
  52. KEYTRUDA [Suspect]
     Active Substance: PEMBROLIZUMAB
     Dosage: 200 MG, 26TH INFUSION
     Dates: start: 20170324, end: 20170324
  53. CALCIUM CITRATE [Concomitant]
     Active Substance: CALCIUM CITRATE
     Indication: OSTEOPOROSIS
     Dosage: UNK
  54. LASTACAFT [Concomitant]
     Active Substance: ALCAFTADINE
     Dosage: UNK
  55. LEVOXYL [Concomitant]
     Active Substance: LEVOTHYROXINE SODIUM
     Dosage: UNK, 100
  56. LIDOCAINE. [Concomitant]
     Active Substance: LIDOCAINE

REACTIONS (116)
  - Nasal cavity cancer [Not Recovered/Not Resolved]
  - Spinal disorder [Unknown]
  - Mood altered [Unknown]
  - Nervousness [Unknown]
  - Anxiety [Unknown]
  - Vascular access complication [Unknown]
  - Infusion site bruising [Unknown]
  - Limb injury [Recovering/Resolving]
  - Cardiomegaly [Not Recovered/Not Resolved]
  - Inflammation [Unknown]
  - Actinic keratosis [Not Recovered/Not Resolved]
  - Therapeutic response unexpected [Unknown]
  - Adverse event [Unknown]
  - Fatigue [Recovered/Resolved]
  - Fatigue [Recovered/Resolved]
  - Fatigue [Recovered/Resolved]
  - Back pain [Not Recovered/Not Resolved]
  - Diarrhoea [Unknown]
  - Hand deformity [Unknown]
  - Tendonitis [Unknown]
  - Arteriosclerosis [Not Recovered/Not Resolved]
  - Procedural site reaction [Unknown]
  - Adverse event [Unknown]
  - Fatigue [Recovered/Resolved]
  - Pruritus [Not Recovered/Not Resolved]
  - Balance disorder [Recovered/Resolved]
  - Infusion site joint pain [Unknown]
  - Bone pain [Recovering/Resolving]
  - Vascular access complication [Recovered/Resolved]
  - Ageusia [Not Recovered/Not Resolved]
  - Skin exfoliation [Unknown]
  - Cardiovascular disorder [Not Recovered/Not Resolved]
  - Infusion site pain [Unknown]
  - Lethargy [Not Recovered/Not Resolved]
  - Blood pressure increased [Recovering/Resolving]
  - Dry skin [Not Recovered/Not Resolved]
  - Fatigue [Recovered/Resolved]
  - Asthenia [Unknown]
  - Fall [Unknown]
  - Musculoskeletal discomfort [Recovering/Resolving]
  - Salivary gland disorder [Not Recovered/Not Resolved]
  - Ankle operation [Unknown]
  - Infusion site haemorrhage [Unknown]
  - Scab [Unknown]
  - Fatigue [Recovered/Resolved]
  - Dry skin [Unknown]
  - Basal cell carcinoma [Unknown]
  - Precancerous skin lesion [Unknown]
  - Malignant neoplasm progression [Unknown]
  - Peripheral coldness [Not Recovered/Not Resolved]
  - Blister [Unknown]
  - Ulcer [Unknown]
  - Blood pressure fluctuation [Unknown]
  - Sinus congestion [Unknown]
  - Synovial cyst [Recovering/Resolving]
  - Injection related reaction [Unknown]
  - Oropharyngeal discomfort [Unknown]
  - Vein disorder [Unknown]
  - Pain [Unknown]
  - Dizziness [Recovered/Resolved]
  - Myalgia [Not Recovered/Not Resolved]
  - Fatigue [Recovered/Resolved]
  - Constipation [Recovered/Resolved]
  - Dyspnoea [Unknown]
  - Rash [Recovering/Resolving]
  - Balance disorder [Not Recovered/Not Resolved]
  - Hypotension [Not Recovered/Not Resolved]
  - Pain of skin [Unknown]
  - Back injury [Unknown]
  - Therapy partial responder [Unknown]
  - Blood pressure fluctuation [Unknown]
  - Off label use [Unknown]
  - Arteriosclerosis coronary artery [Not Recovered/Not Resolved]
  - Brain scan abnormal [Unknown]
  - Injection site haemorrhage [Recovered/Resolved]
  - Injection site pain [Recovered/Resolved]
  - Pain in extremity [Unknown]
  - Adverse event [Unknown]
  - Musculoskeletal pain [Unknown]
  - Fatigue [Recovered/Resolved]
  - Erythema [Unknown]
  - Squamous cell carcinoma [Unknown]
  - Diverticulitis [Not Recovered/Not Resolved]
  - Disturbance in attention [Recovering/Resolving]
  - Skin injury [Unknown]
  - Joint range of motion decreased [Not Recovered/Not Resolved]
  - Periodontal disease [Unknown]
  - Dysphagia [Unknown]
  - Pollakiuria [Unknown]
  - Hypokinesia [Unknown]
  - Aptyalism [Unknown]
  - Micturition disorder [Unknown]
  - Wound [Unknown]
  - Vaccination site pain [Unknown]
  - Procedural complication [Unknown]
  - Vertigo [Recovered/Resolved]
  - Fatigue [Recovered/Resolved]
  - Fatigue [Recovered/Resolved]
  - Fatigue [Recovered/Resolved]
  - Chills [Unknown]
  - Squamous cell carcinoma [Recovered/Resolved]
  - Haemorrhage [Unknown]
  - Skin exfoliation [Unknown]
  - Orthostatic hypertension [Unknown]
  - Tenosynovitis [Unknown]
  - Aortic arteriosclerosis [Not Recovered/Not Resolved]
  - Actinic keratosis [Unknown]
  - Anxiety [Recovering/Resolving]
  - Infusion site pain [Unknown]
  - Hypertension [Unknown]
  - Weight decreased [Unknown]
  - Alopecia [Not Recovered/Not Resolved]
  - Productive cough [Recovered/Resolved]
  - Fatigue [Recovered/Resolved]
  - Arthralgia [Not Recovered/Not Resolved]
  - Hypersensitivity [Unknown]

NARRATIVE: CASE EVENT DATE: 2015
